FAERS Safety Report 24679938 (Version 1)
Quarter: 2024Q4

REPORT INFORMATION
  Report Type: Spontaneous
  Country: CN (occurrence: CN)
  Receive Date: 20241129
  Receipt Date: 20241129
  Transmission Date: 20250115
  Serious: Yes (Hospitalization, Other)
  Sender: BAXTER
  Company Number: None

PATIENT
  Age: 55 Year
  Sex: Female
  Weight: 49 kg

DRUGS (2)
  1. CYCLOPHOSPHAMIDE [Suspect]
     Active Substance: CYCLOPHOSPHAMIDE
     Indication: Chemotherapy
     Dosage: 1.1 G, ONE TIME IN ONE DAY
     Route: 041
     Dates: start: 20241103, end: 20241103
  2. CYCLOPHOSPHAMIDE [Suspect]
     Active Substance: CYCLOPHOSPHAMIDE
     Indication: Acute lymphocytic leukaemia

REACTIONS (13)
  - Leukoplakia oral [Unknown]
  - Nausea [Recovering/Resolving]
  - Vomiting [Recovering/Resolving]
  - Myelosuppression [Unknown]
  - Agranulocytosis [Recovering/Resolving]
  - Asthenia [Unknown]
  - Anaemia [Unknown]
  - Infection [Recovering/Resolving]
  - Chills [Unknown]
  - Cardiac failure [Unknown]
  - Temperature intolerance [Unknown]
  - Tachypnoea [Unknown]
  - Discomfort [Unknown]

NARRATIVE: CASE EVENT DATE: 20241105
